FAERS Safety Report 15822423 (Version 2)
Quarter: 2019Q1

REPORT INFORMATION
  Report Type: Spontaneous
  Country: US (occurrence: US)
  Receive Date: 20190114
  Receipt Date: 20190320
  Transmission Date: 20190417
  Serious: No
  Sender: FDA-Public Use
  Company Number: US-ELI_LILLY_AND_COMPANY-US201901003879

PATIENT
  Sex: Female

DRUGS (1)
  1. EMGALITY [Suspect]
     Active Substance: GALCANEZUMAB-GNLM
     Indication: MIGRAINE
     Dosage: 240 MG, LOADING DOSE
     Route: 058
     Dates: start: 20181128, end: 20181128

REACTIONS (3)
  - Urticaria [Recovering/Resolving]
  - Rash [Recovering/Resolving]
  - Erythema [Recovering/Resolving]
